FAERS Safety Report 25529428 (Version 2)
Quarter: 2025Q3

REPORT INFORMATION
  Report Type: Spontaneous
  Country: EU (occurrence: EU)
  Receive Date: 20250708
  Receipt Date: 20250716
  Transmission Date: 20251021
  Serious: Yes (Hospitalization)
  Sender: PFIZER
  Company Number: EU-ROCHE-10000305254

PATIENT
  Age: 55 Year
  Sex: Male

DRUGS (6)
  1. BEVACIZUMAB [Suspect]
     Active Substance: BEVACIZUMAB
     Indication: Lung neoplasm malignant
     Dates: start: 20240220
  2. BEVACIZUMAB [Suspect]
     Active Substance: BEVACIZUMAB
     Dates: start: 20250516
  3. PACLITAXEL [Suspect]
     Active Substance: PACLITAXEL
     Indication: Lung neoplasm malignant
     Dates: start: 20240220
  4. PACLITAXEL [Suspect]
     Active Substance: PACLITAXEL
     Dates: start: 20250516
  5. ATEZOLIZUMAB [Suspect]
     Active Substance: ATEZOLIZUMAB
     Indication: Lung neoplasm malignant
     Dates: start: 20240220
  6. ATEZOLIZUMAB [Suspect]
     Active Substance: ATEZOLIZUMAB
     Dates: start: 20250516

REACTIONS (2)
  - Pyrexia [Recovered/Resolved with Sequelae]
  - Sepsis [Recovered/Resolved]

NARRATIVE: CASE EVENT DATE: 20250529
